FAERS Safety Report 12649450 (Version 1)
Quarter: 2016Q3

REPORT INFORMATION
  Report Type: Spontaneous
  Country: US (occurrence: US)
  Receive Date: 20160812
  Receipt Date: 20160812
  Transmission Date: 20161109
  Serious: No
  Sender: FDA-Public Use
  Company Number: US-009507513-1607USA007802

PATIENT
  Age: 40 Year
  Sex: Female

DRUGS (5)
  1. MAXALT [Concomitant]
     Active Substance: RIZATRIPTAN BENZOATE
  2. BELSOMRA [Suspect]
     Active Substance: SUVOREXANT
     Indication: INSOMNIA
     Dosage: UNK, UNKNOWN
     Route: 048
  3. WELLBUTRIN [Concomitant]
     Active Substance: BUPROPION HYDROCHLORIDE
  4. PREME [Concomitant]
  5. SINGULAIR [Concomitant]
     Active Substance: MONTELUKAST SODIUM

REACTIONS (1)
  - Anxiety [Unknown]
